FAERS Safety Report 8935397 (Version 1)
Quarter: 2012Q4

REPORT INFORMATION
  Report Type: Spontaneous
  Country: US (occurrence: None)
  Receive Date: 20121127
  Receipt Date: 20121127
  Transmission Date: 20130627
  Serious: Yes (Hospitalization)
  Sender: FDA-Public Use
  Company Number: None

PATIENT
  Age: 70 Year
  Sex: Male
  Weight: 70 kg

DRUGS (2)
  1. WARFARIN [Suspect]
     Indication: THROMBOEMBOLISM PROPHYLAXIS
     Route: 048
     Dates: start: 20020101, end: 20120425
  2. WARFARIN [Suspect]
     Indication: PROTEIN S DEFICIENCY
     Route: 048
     Dates: start: 20020101, end: 20120425

REACTIONS (3)
  - International normalised ratio increased [None]
  - Haemoglobin decreased [None]
  - Haemothorax [None]
